FAERS Safety Report 5766500-7 (Version None)
Quarter: 2008Q2

REPORT INFORMATION
  Report Type: 
  Country: None (occurrence: None)
  Receive Date: 20080606
  Receipt Date: 20080528
  Transmission Date: 20081010
  Serious: Yes (Hospitalization)
  Sender: FDA-Public Use
  Company Number: GXKR2008NO04854

PATIENT
  Age: 65 Year
  Sex: Female

DRUGS (3)
  1. METOPROLOL (NGX) (METOPROLOL) UNKNOWN, 50MG [Suspect]
     Indication: CARDIAC FIBRILLATION
     Dosage: ORAL
     Route: 048
  2. SIMVASTATIN [Concomitant]
  3. LANSOPRAZOLE [Concomitant]

REACTIONS (2)
  - ARRHYTHMIA [None]
  - CONDITION AGGRAVATED [None]
